FAERS Safety Report 24417377 (Version 2)
Quarter: 2024Q4

REPORT INFORMATION
  Report Type: Spontaneous
  Country: US (occurrence: US)
  Receive Date: 20241009
  Receipt Date: 20241108
  Transmission Date: 20250115
  Serious: Yes (Other)
  Sender: SANOFI AVENTIS
  Company Number: US-SA-2024SA291136

PATIENT
  Age: 78 Year
  Sex: Female

DRUGS (10)
  1. DUPIXENT [Suspect]
     Active Substance: DUPILUMAB
     Indication: Dermatitis atopic
     Dosage: 300 MG, QOW
     Route: 058
     Dates: start: 20240821
  2. AMLODIPINE BESYLATE [Concomitant]
     Active Substance: AMLODIPINE BESYLATE
  3. LEVOTHYROXINE [Concomitant]
     Active Substance: LEVOTHYROXINE
  4. VITAMINS NOS [Concomitant]
     Active Substance: VITAMINS
  5. LISINOPRIL [Concomitant]
     Active Substance: LISINOPRIL
  6. PIMECROLIMUS [Concomitant]
     Active Substance: PIMECROLIMUS
  7. TRIAMCINOLONE [Concomitant]
     Active Substance: TRIAMCINOLONE
  8. LEVOTHYROXINE SODIUM [Concomitant]
     Active Substance: LEVOTHYROXINE SODIUM
  9. VITAMINS [Concomitant]
     Active Substance: VITAMINS
  10. OSTEO BI-FLEX EASE [Concomitant]

REACTIONS (10)
  - Muscle rupture [Unknown]
  - Fall [Unknown]
  - Ligament sprain [Unknown]
  - Eyelid pain [Not Recovered/Not Resolved]
  - Balance disorder [Not Recovered/Not Resolved]
  - Dizziness [Unknown]
  - Pruritus [Not Recovered/Not Resolved]
  - Erythema of eyelid [Not Recovered/Not Resolved]
  - Arthralgia [Unknown]
  - Injection site pain [Unknown]

NARRATIVE: CASE EVENT DATE: 20240101
